FAERS Safety Report 4765176-5 (Version None)
Quarter: 2005Q3

REPORT INFORMATION
  Report Type: 
  Country: None (occurrence: None)
  Receive Date: 20050906
  Receipt Date: 20050823
  Transmission Date: 20060218
  Serious: Yes (Other)
  Sender: FDA-Public Use
  Company Number: PHEH2005US09419

PATIENT
  Sex: Female

DRUGS (1)
  1. VISUDYNE [Suspect]
     Dosage: NI

REACTIONS (3)
  - BACK PAIN [None]
  - INFUSION RELATED REACTION [None]
  - MYOCARDIAL INFARCTION [None]
